FAERS Safety Report 8385124 (Version 2)
Quarter: 2012Q4

REPORT INFORMATION
  Report Type: Spontaneous
  Country: GB (occurrence: None)
  Receive Date: 20120119
  Receipt Date: 20121017
  Transmission Date: 20130627
  Serious: Yes (Death)
  Sender: FDA-Public Use
  Company Number: GER/UKI/12/0022606

PATIENT
  Age: 21 Year
  Sex: Male
  Weight: 110 kg

DRUGS (2)
  1. RISPERIDONE [Suspect]
     Indication: PRODUCT USED FOR UNKNOWN INDICATION
     Dosage: 1 MG, 2 IN 1 D, ORAL
     Route: 048
     Dates: start: 2006
  2. LAMOTRIGINE (LAMOTRIGINE) [Concomitant]

REACTIONS (3)
  - Sudden death [None]
  - Anxiety [None]
  - Epilepsy [None]
